FAERS Safety Report 10960589 (Version 2)
Quarter: 2015Q4

REPORT INFORMATION
  Report Type: Spontaneous
  Country: FR (occurrence: FR)
  Receive Date: 20150327
  Receipt Date: 20151023
  Transmission Date: 20160304
  Serious: Yes (Death, Other)
  Sender: FDA-Public Use
  Company Number: FR-CELGENE-FRA-2015035071

PATIENT

DRUGS (1)
  1. AZACITIDINE INJECTABLE [Suspect]
     Active Substance: AZACITIDINE
     Indication: MYELODYSPLASTIC SYNDROME
     Route: 065

REACTIONS (12)
  - Toxicity to various agents [Fatal]
  - Skin infection [Unknown]
  - Urinary tract infection [Unknown]
  - No therapeutic response [Unknown]
  - Septic shock [Fatal]
  - Myelodysplastic syndrome [Fatal]
  - Tooth infection [Unknown]
  - Lung infection [Fatal]
  - Device related infection [Unknown]
  - Sepsis [Unknown]
  - Pyrexia [Unknown]
  - Aspergillus infection [Fatal]
